FAERS Safety Report 9306307 (Version 1)
Quarter: 2013Q2

REPORT INFORMATION
  Report Type: Spontaneous
  Country: BR (occurrence: BR)
  Receive Date: 20130523
  Receipt Date: 20130523
  Transmission Date: 20140414
  Serious: Yes (Hospitalization)
  Sender: FDA-Public Use
  Company Number: BR-ASTRAZENECA-2013SE34745

PATIENT
  Age: 67 Year
  Sex: Female
  Weight: 80 kg

DRUGS (6)
  1. NEXIUM [Suspect]
     Indication: GASTROOESOPHAGEAL REFLUX DISEASE
     Route: 048
     Dates: start: 2009, end: 201304
  2. NEXIUM [Suspect]
     Indication: GASTROOESOPHAGEAL REFLUX DISEASE
     Route: 048
     Dates: start: 201304, end: 201305
  3. NEXIUM [Suspect]
     Indication: GASTROOESOPHAGEAL REFLUX DISEASE
     Route: 048
     Dates: start: 201305
  4. ANASTROZOL [Suspect]
     Indication: BREAST CANCER FEMALE
     Dates: start: 201205
  5. LORAZEPAM [Concomitant]
  6. METFORMIN [Concomitant]
     Indication: DIABETES MELLITUS

REACTIONS (3)
  - Breast cancer female [Unknown]
  - Drug ineffective [Not Recovered/Not Resolved]
  - Disease recurrence [Not Recovered/Not Resolved]
